FAERS Safety Report 24647272 (Version 1)
Quarter: 2024Q4

REPORT INFORMATION
  Report Type: Spontaneous
  Country: AU (occurrence: AU)
  Receive Date: 20241121
  Receipt Date: 20241121
  Transmission Date: 20250114
  Serious: Yes (Other)
  Sender: ROCHE
  Company Number: AU-ROCHE-10000133516

PATIENT
  Sex: Male

DRUGS (2)
  1. RITUXIMAB [Suspect]
     Active Substance: RITUXIMAB
     Indication: Immune thrombocytopenia
     Route: 042
  2. RITUXIMAB [Suspect]
     Active Substance: RITUXIMAB
     Indication: Antiphospholipid syndrome

REACTIONS (3)
  - Immune thrombocytopenia [Unknown]
  - Drug specific antibody present [Unknown]
  - Antiphospholipid syndrome [Unknown]
